FAERS Safety Report 10755457 (Version 1)
Quarter: 2015Q1

REPORT INFORMATION
  Report Type: Report from Study
  Country: US (occurrence: US)
  Receive Date: 20150202
  Receipt Date: 20150202
  Transmission Date: 20150721
  Serious: Yes (Hospitalization, Other)
  Sender: FDA-Public Use
  Company Number: US-BAXTER-2015BAX005828

PATIENT

DRUGS (2)
  1. INTRALIPID [Suspect]
     Active Substance: EGG PHOSPHOLIPIDS\GLYCERIN\SOYBEAN OIL
     Indication: PARENTERAL NUTRITION
     Route: 065
  2. PREMASOL - SULFITE-FREE (AMINO ACID) [Suspect]
     Active Substance: ALANINE\ARGININE\ASPARTIC ACID\CYSTEINE HYDROCHLORIDE\GLUTAMIC ACID\GLYCINE\HISTIDINE\ISOLEUCINE\LEUCINE\LYSINE ACETATE\METHIONINE\N-ACETYL-TYROSINE\PHENYLALANINE\PROLINE\SERINE\TAURINE\THREONINE\TRYPTOPHAN\TYROSINE\VALINE
     Indication: PARENTERAL NUTRITION
     Route: 065

REACTIONS (1)
  - Parenteral nutrition associated liver disease [Unknown]
